FAERS Safety Report 12960733 (Version 1)
Quarter: 2016Q4

REPORT INFORMATION
  Report Type: Spontaneous
  Country: US (occurrence: US)
  Receive Date: 20161121
  Receipt Date: 20161121
  Transmission Date: 20170207
  Serious: Yes (Other)
  Sender: FDA-Public Use
  Company Number: US-BAYER-2016-219775

PATIENT
  Age: 10 Year

DRUGS (1)
  1. GADAVIST [Suspect]
     Active Substance: GADOBUTROL
     Dosage: UNK UNK, ONCE
     Dates: start: 20161112, end: 20161112

REACTIONS (9)
  - Urticaria [None]
  - Sneezing [None]
  - Dysphagia [None]
  - Headache [None]
  - Dyspnoea [None]
  - Condition aggravated [None]
  - Tongue discomfort [None]
  - Pharyngeal disorder [None]
  - Speech disorder [None]

NARRATIVE: CASE EVENT DATE: 20161112
